FAERS Safety Report 9778924 (Version 1)
Quarter: 2013Q4

REPORT INFORMATION
  Report Type: Report from Study
  Country: DE (occurrence: DE)
  Receive Date: 20131223
  Receipt Date: 20131223
  Transmission Date: 20140711
  Serious: Yes (Hospitalization)
  Sender: FDA-Public Use
  Company Number: DE-009507513-1312DEU008874

PATIENT
  Age: 62 Year
  Sex: Female

DRUGS (3)
  1. BOCEPREVIR [Suspect]
     Indication: CHRONIC HEPATITIS C
     Dosage: 800 MG, TID
     Route: 048
     Dates: start: 20131017
  2. PEGINTERFERON ALFA-2A [Suspect]
     Indication: CHRONIC HEPATITIS C
  3. RIBAVIRIN [Suspect]
     Indication: CHRONIC HEPATITIS C

REACTIONS (1)
  - Diarrhoea [Recovered/Resolved]
